FAERS Safety Report 16059493 (Version 6)
Quarter: 2019Q3

REPORT INFORMATION
  Report Type: Report from Study
  Country: US (occurrence: US)
  Receive Date: 20190311
  Receipt Date: 20190909
  Transmission Date: 20191004
  Serious: Yes (Hospitalization)
  Sender: FDA-Public Use
  Company Number: US-ACTELION-A-NJ2019-187164

PATIENT
  Age: 54 Year
  Sex: Female

DRUGS (4)
  1. OPSUMIT [Suspect]
     Active Substance: MACITENTAN
     Indication: PULMONARY ARTERIAL HYPERTENSION
     Dosage: 10 MG, QD
     Route: 048
     Dates: start: 20171229
  2. TYVASO [Concomitant]
     Active Substance: TREPROSTINIL
  3. ADCIRCA [Suspect]
     Active Substance: TADALAFIL
     Indication: PULMONARY ARTERIAL HYPERTENSION
     Dosage: 20 MG, QD
     Route: 048
     Dates: start: 20180225
  4. REMODULIN [Concomitant]
     Active Substance: TREPROSTINIL

REACTIONS (8)
  - Pneumonia [Unknown]
  - Pulmonary arterial hypertension [Unknown]
  - Lung disorder [Unknown]
  - Hospitalisation [Not Recovered/Not Resolved]
  - Dyspnoea [Not Recovered/Not Resolved]
  - Medical procedure [Unknown]
  - Fluid retention [Not Recovered/Not Resolved]
  - Malaise [Unknown]

NARRATIVE: CASE EVENT DATE: 20190225
